FAERS Safety Report 5793932-3 (Version None)
Quarter: 2008Q2

REPORT INFORMATION
  Report Type: 
  Country: None (occurrence: None)
  Receive Date: 20080627
  Receipt Date: 20080623
  Transmission Date: 20081010
  Serious: Yes (Death)
  Sender: FDA-Public Use
  Company Number: TR-GENENTECH-263377

PATIENT
  Age: 19 Year
  Sex: Male

DRUGS (4)
  1. ACTIVASE [Suspect]
     Indication: HEPATIC ARTERY THROMBOSIS
     Dosage: UNK, CONTINUOUS
     Route: 013
  2. HEPARIN [Concomitant]
     Indication: ANTICOAGULANT THERAPY
     Route: 041
  3. TACROLIMUS [Concomitant]
     Indication: IMMUNOSUPPRESSANT DRUG THERAPY
  4. IMMUNOSUPPRESSANT NOS [Concomitant]
     Indication: IMMUNOSUPPRESSANT DRUG THERAPY

REACTIONS (2)
  - DRUG INEFFECTIVE [None]
  - HEPATIC FAILURE [None]
